FAERS Safety Report 16006347 (Version 1)
Quarter: 2019Q1

REPORT INFORMATION
  Report Type: Spontaneous
  Country: ZA (occurrence: ZA)
  Receive Date: 20190226
  Receipt Date: 20190226
  Transmission Date: 20190418
  Serious: Yes (Hospitalization, Other)
  Sender: FDA-Public Use
  Company Number: IND-ZA-009507513-1902ZAF008115

PATIENT
  Sex: Male

DRUGS (2)
  1. EXINEF [Suspect]
     Active Substance: ETORICOXIB
     Dosage: 90 MILLIGRAM
     Route: 048
  2. TRAMACET [Suspect]
     Active Substance: ACETAMINOPHEN\TRAMADOL
     Dosage: UNK

REACTIONS (1)
  - Pulmonary oedema [Unknown]
